FAERS Safety Report 4806215-2 (Version None)
Quarter: 2005Q4

REPORT INFORMATION
  Report Type: 
  Country: None (occurrence: None)
  Receive Date: 20051021
  Receipt Date: 20051011
  Transmission Date: 20060501
  Serious: Yes (Hospitalization)
  Sender: FDA-Public Use
  Company Number: US-BRISTOL-MYERS SQUIBB COMPANY-13141312

PATIENT
  Sex: Female

DRUGS (2)
  1. PARAPLATIN [Suspect]
     Indication: OVARIAN CANCER
  2. TAXOTERE [Suspect]
     Indication: OVARIAN CANCER

REACTIONS (2)
  - HYPERSENSITIVITY [None]
  - RESPIRATORY ARREST [None]
